FAERS Safety Report 12599697 (Version 1)
Quarter: 2016Q3

REPORT INFORMATION
  Report Type: Spontaneous
  Country: US (occurrence: US)
  Receive Date: 20160727
  Receipt Date: 20160727
  Transmission Date: 20161109
  Serious: Yes (Other)
  Sender: FDA-Public Use
  Company Number: US-SA-2016SA000027

PATIENT
  Sex: Male

DRUGS (2)
  1. AMBIEN [Suspect]
     Active Substance: ZOLPIDEM TARTRATE
     Route: 065
  2. VALIUM [Suspect]
     Active Substance: DIAZEPAM
     Route: 065

REACTIONS (8)
  - Tremor [Unknown]
  - Suicidal ideation [Unknown]
  - Anger [Unknown]
  - Alopecia [Unknown]
  - Paraesthesia [Unknown]
  - Impaired driving ability [Unknown]
  - Depression [Unknown]
  - Palpitations [Unknown]
